FAERS Safety Report 18667196 (Version 1)
Quarter: 2020Q4

REPORT INFORMATION
  Report Type: Other
  Country: US (occurrence: US)
  Receive Date: 20201228
  Receipt Date: 20201228
  Transmission Date: 20210114
  Serious: No
  Sender: FDA-Public Use
  Company Number: US-NEUROCRINE BIOSCIENCES INC.-2020NBI04654

PATIENT
  Age: 58 Year
  Sex: Female
  Weight: 93.52 kg

DRUGS (2)
  1. INGREZZA [Suspect]
     Active Substance: VALBENAZINE
     Dosage: 80 MG DAILY FOR A COUPLE OF YEARS
     Route: 048
  2. INGREZZA [Suspect]
     Active Substance: VALBENAZINE
     Indication: TARDIVE DYSKINESIA
     Dosage: STARTED ON 40 MG FOR MORE THAT 1 WEEK
     Route: 048

REACTIONS (1)
  - Therapeutic product effect incomplete [Unknown]
